FAERS Safety Report 4973975-X (Version None)
Quarter: 2006Q2

REPORT INFORMATION
  Report Type: 
  Country: None (occurrence: None)
  Receive Date: 20060410
  Receipt Date: 20060328
  Transmission Date: 20061013
  Serious: Yes (Other)
  Sender: FDA-Public Use
  Company Number: 2006043451

PATIENT
  Age: 55 Year
  Sex: Female
  Weight: 82.5547 kg

DRUGS (3)
  1. GLUCOTROL XL [Suspect]
     Indication: DIABETES MELLITUS NON-INSULIN-DEPENDENT
     Dosage: 5 MG (5 MG, 1 IN 1 D)
     Dates: start: 19950101
  2. METFORMIN [Concomitant]
  3. ECOTRIN (ACETYLSALICYLIC ACID) [Concomitant]

REACTIONS (6)
  - CARTILAGE INJURY [None]
  - FACE INJURY [None]
  - FALL [None]
  - JOINT INJURY [None]
  - LOWER LIMB FRACTURE [None]
  - OSTEOARTHRITIS [None]
